FAERS Safety Report 8126069-9 (Version None)
Quarter: 2012Q1

REPORT INFORMATION
  Report Type: 
  Country: None (occurrence: None)
  Receive Date: 20120209
  Receipt Date: 20120130
  Transmission Date: 20120608
  Serious: Yes (Hospitalization, Other)
  Sender: FDA-Public Use
  Company Number: PHHY2012CA007417

PATIENT
  Sex: Female

DRUGS (13)
  1. LOVAZA [Concomitant]
     Dosage: UNK UKN, UNK
  2. MAGNESIUM [Concomitant]
     Dosage: UNK UKN, UNK
  3. CLOZARIL [Suspect]
     Indication: PSYCHOTIC DISORDER
     Dosage: 50 MG
     Route: 048
     Dates: start: 20111213, end: 20111227
  4. TEMODAR [Concomitant]
     Dosage: UNK UKN, UNK
  5. COLACE [Concomitant]
     Dosage: UNK UKN, UNK
  6. ATIVAN [Concomitant]
     Dosage: UNK UKN, UNK
  7. RISPERDAL [Concomitant]
     Dosage: UNK UKN, UNK
  8. SYNTHROID [Concomitant]
     Dosage: UNK UKN, UNK
  9. NORVASC [Concomitant]
     Dosage: UNK UKN, UNK
  10. VITAMIN D [Concomitant]
     Dosage: UNK UKN, UNK
  11. MOTILIUM [Concomitant]
     Dosage: UNK UKN, UNK
  12. FLONASE [Concomitant]
     Dosage: UNK UKN, UNK
  13. ZINC SULFATE [Concomitant]
     Dosage: UNK UKN, UNK

REACTIONS (4)
  - SINUS TACHYCARDIA [None]
  - ANGIOEDEMA [None]
  - HYPOTENSION [None]
  - HYPERSENSITIVITY [None]
